FAERS Safety Report 16053339 (Version 1)
Quarter: 2019Q1

REPORT INFORMATION
  Report Type: Spontaneous
  Country: FR (occurrence: FR)
  Receive Date: 20190308
  Receipt Date: 20190308
  Transmission Date: 20190418
  Serious: Yes (Other)
  Sender: FDA-Public Use
  Company Number: FR-MYLANLABS-2019M1021107

PATIENT
  Age: 54 Year
  Sex: Male
  Weight: 78 kg

DRUGS (15)
  1. ATRACURIUM [Concomitant]
     Active Substance: ATRACURIUM
     Dosage: UNK
  2. UMULINE [Concomitant]
     Active Substance: INSULIN HUMAN
     Dosage: UNK
  3. MIDAZOLAM [Suspect]
     Active Substance: MIDAZOLAM HYDROCHLORIDE
     Indication: SEDATION
     Dosage: 4 MILLIGRAM, QH
     Route: 041
     Dates: start: 20180305, end: 20180320
  4. MORPHINE AGUETTANT [Suspect]
     Active Substance: MORPHINE HYDROCHLORIDE
     Indication: SEDATION
     Dosage: 36 MILLIGRAM, QH
     Route: 041
     Dates: start: 20180305, end: 20180322
  5. CEFEPIME [Concomitant]
     Active Substance: CEFEPIME HYDROCHLORIDE
  6. TAMIFLU [Concomitant]
     Active Substance: OSELTAMIVIR PHOSPHATE
     Dosage: UNK
  7. ROVAMYCINE                         /00074401/ [Concomitant]
     Active Substance: SPIRAMYCIN
     Dosage: UNK
  8. LOVENOX [Concomitant]
     Active Substance: ENOXAPARIN SODIUM
     Dosage: UNK
  9. PARACETAMOL [Concomitant]
     Active Substance: ACETAMINOPHEN
     Dosage: UNK
  10. PROPOFOL. [Concomitant]
     Active Substance: PROPOFOL
     Dosage: UNK
  11. PIPERACILLINE / TAZOBACTAM MYLAN [Concomitant]
     Active Substance: PIPERACILLIN SODIUM\TAZOBACTAM SODIUM
     Dosage: UNK
  12. FUROSEMIDE RENAUDIN [Concomitant]
     Active Substance: FUROSEMIDE
  13. AMIKACINE                          /00391001/ [Concomitant]
     Active Substance: AMIKACIN
     Dosage: UNK
  14. OLIMEL [Concomitant]
     Active Substance: AMINO ACIDS\DEXTROSE\SOYBEAN OIL
  15. PHOCYTAN [Concomitant]
     Active Substance: .ALPHA.-GLUCOSE-1-PHOSPHATE

REACTIONS (1)
  - Constipation [Recovered/Resolved]

NARRATIVE: CASE EVENT DATE: 20180305
